FAERS Safety Report 18950239 (Version 1)
Quarter: 2021Q1

REPORT INFORMATION
  Report Type: Spontaneous
  Country: US (occurrence: US)
  Receive Date: 20210228
  Receipt Date: 20210228
  Transmission Date: 20210420
  Serious: No
  Sender: FDA-Public Use
  Company Number: US-ROCHE-2716861

PATIENT
  Sex: Female
  Weight: 81.72 kg

DRUGS (2)
  1. PREDNISONE. [Concomitant]
     Active Substance: PREDNISONE
     Dates: start: 20200401
  2. XOLAIR [Suspect]
     Active Substance: OMALIZUMAB
     Indication: IDIOPATHIC URTICARIA
     Dosage: FORM STRENGTH: 150 MG SDV
     Route: 058
     Dates: start: 20200211

REACTIONS (1)
  - Alopecia [Recovering/Resolving]
